FAERS Safety Report 6533332-1 (Version None)
Quarter: 2010Q1

REPORT INFORMATION
  Report Type: 
  Country: None (occurrence: None)
  Receive Date: 20100111
  Receipt Date: 20100107
  Transmission Date: 20100710
  Serious: Yes (Hospitalization)
  Sender: FDA-Public Use
  Company Number: A0838544A

PATIENT

DRUGS (1)
  1. LAMICTAL [Suspect]
     Route: 048
     Dates: start: 20090101

REACTIONS (2)
  - SPLEEN DISORDER [None]
  - THROMBOSIS [None]
